FAERS Safety Report 24926629 (Version 1)
Quarter: 2025Q1

REPORT INFORMATION
  Report Type: Spontaneous
  Country: AU (occurrence: AU)
  Receive Date: 20250205
  Receipt Date: 20250205
  Transmission Date: 20250409
  Serious: Yes (Other)
  Sender: GLAND PHARMA LTD
  Company Number: AU-GLANDPHARMA-AU-2025GLNLIT00116

PATIENT
  Age: 53 Year
  Sex: Female

DRUGS (6)
  1. CISPLATIN [Suspect]
     Active Substance: CISPLATIN
     Indication: Squamous cell carcinoma
     Route: 065
  2. CYCLOPHOSPHAMIDE [Concomitant]
     Active Substance: CYCLOPHOSPHAMIDE
     Route: 065
  3. METHOTREXATE [Concomitant]
     Active Substance: METHOTREXATE
     Route: 065
  4. EPIRUBICIN [Concomitant]
     Active Substance: EPIRUBICIN
     Route: 065
  5. DOCETAXEL [Concomitant]
     Active Substance: DOCETAXEL
     Route: 065
  6. FLUOROURACIL [Concomitant]
     Active Substance: FLUOROURACIL
     Route: 065

REACTIONS (3)
  - Neutropenic sepsis [Unknown]
  - Myelosuppression [Unknown]
  - Product use in unapproved indication [Unknown]
